FAERS Safety Report 7701155-3 (Version None)
Quarter: 2011Q3

REPORT INFORMATION
  Report Type: 
  Country: None (occurrence: None)
  Receive Date: 20110819
  Receipt Date: 20110819
  Transmission Date: 20111222
  Serious: Yes (Other)
  Sender: FDA-Public Use
  Company Number: None

PATIENT
  Age: 58 Year
  Sex: Male

DRUGS (2)
  1. PEGASYS [Suspect]
     Dosage: 180MCG QW SQ
     Route: 058
     Dates: start: 20110726, end: 20110817
  2. INCIVEK [Suspect]
     Dosage: 760MG TID PO
     Route: 048
     Dates: start: 20110726, end: 20110817

REACTIONS (4)
  - INSOMNIA [None]
  - PYREXIA [None]
  - DIARRHOEA [None]
  - VOMITING [None]
